FAERS Safety Report 6198000-7 (Version None)
Quarter: 2009Q2

REPORT INFORMATION
  Report Type: 
  Country: None (occurrence: None)
  Receive Date: 20090521
  Receipt Date: 20090514
  Transmission Date: 20091009
  Serious: Yes (Death, Hospitalization, Other)
  Sender: FDA-Public Use
  Company Number: DE-ELI_LILLY_AND_COMPANY-DE200801002419

PATIENT
  Sex: Male

DRUGS (2)
  1. FORTEO [Suspect]
     Indication: OSTEOPOROSIS
     Dosage: UNK, UNKNOWN
     Route: 058
     Dates: start: 20071129
  2. CHEMOTHERAPEUTICS NOS [Concomitant]
     Dosage: UNK, UNKNOWN
     Route: 065

REACTIONS (28)
  - ANTITHROMBIN III DECREASED [None]
  - ARTERIOSCLEROSIS [None]
  - COAGULOPATHY [None]
  - COLITIS ULCERATIVE [None]
  - COLONIC POLYP [None]
  - COMA [None]
  - CONVULSION [None]
  - DECUBITUS ULCER [None]
  - DIARRHOEA [None]
  - DUODENAL ULCER [None]
  - DUODENAL ULCER PERFORATION [None]
  - DYSPNOEA [None]
  - GASTROINTESTINAL DISORDER [None]
  - GASTROOESOPHAGEAL REFLUX DISEASE [None]
  - GOUT [None]
  - HEPATIC CIRRHOSIS [None]
  - HYPERURICAEMIA [None]
  - HYPOGLYCAEMIA [None]
  - LIVER DISORDER [None]
  - METABOLIC ACIDOSIS [None]
  - MULTI-ORGAN FAILURE [None]
  - PNEUMONIA ASPIRATION [None]
  - PRESBYACUSIS [None]
  - RENAL FAILURE ACUTE [None]
  - RESPIRATORY FAILURE [None]
  - SEPSIS [None]
  - THROMBOCYTOPENIA [None]
  - VASCULAR ENCEPHALOPATHY [None]
